FAERS Safety Report 4399865-1 (Version None)
Quarter: 2004Q3

REPORT INFORMATION
  Report Type: 
  Country: None (occurrence: None)
  Receive Date: 20040714
  Receipt Date: 20040701
  Transmission Date: 20050211
  Serious: Yes (Hospitalization)
  Sender: FDA-Public Use
  Company Number: CIP04000589

PATIENT
  Age: 76 Year
  Sex: Female

DRUGS (6)
  1. BENET (RISEDRONATE SODIUM) TABLET, 2.5MG [Suspect]
     Indication: OSTEOPOROSIS
     Dosage: 2.5 MG DAILY, ORAL
     Route: 048
     Dates: start: 20040209, end: 20040302
  2. FLAVOXATE [Suspect]
     Dosage: 600 MG, DAILY
     Dates: start: 20031101, end: 20040302
  3. ESIDRI (HYDRALAZINE HYDROCHLORIDE) [Concomitant]
  4. LEVOTHYROXINE SODIUM [Concomitant]
  5. CAMOSTAT MESILATE (CAMOSTAT MESILATE) [Concomitant]
  6. TRANCOLON (MEPENZOLATE BROMIDE) [Concomitant]

REACTIONS (5)
  - ANTIMITOCHONDRIAL ANTIBODY POSITIVE [None]
  - BLOOD ALBUMIN DECREASED [None]
  - HEPATITIS ACUTE [None]
  - PROTEIN TOTAL DECREASED [None]
  - SPLENOMEGALY [None]
